FAERS Safety Report 21802144 (Version 1)
Quarter: 2022Q4

REPORT INFORMATION
  Report Type: Report from Study
  Country: US (occurrence: US)
  Receive Date: 20221230
  Receipt Date: 20221230
  Transmission Date: 20230112
  Serious: No
  Sender: FDA-Public Use
  Company Number: US-ACORDA-ACO_172773_2022

PATIENT
  Sex: Female

DRUGS (3)
  1. INBRIJA [Suspect]
     Active Substance: LEVODOPA
     Indication: Parkinson^s disease
     Dosage: 2 CAPSULES (84MG), PRN (NOT TO EXCEED 5 DOSES A DAY)
     Dates: start: 202204
  2. INBRIJA [Suspect]
     Active Substance: LEVODOPA
     Indication: On and off phenomenon
  3. CARBIDOPA\LEVODOPA [Concomitant]
     Active Substance: CARBIDOPA\LEVODOPA
     Indication: Product used for unknown indication
     Dosage: 25/100 MILLIGRAM, 2.5 PILLS 4X/DAY
     Route: 065

REACTIONS (5)
  - Product residue present [Unknown]
  - Device use issue [Unknown]
  - Thirst [Not Recovered/Not Resolved]
  - Intentional underdose [Unknown]
  - Cough [Not Recovered/Not Resolved]
